FAERS Safety Report 4672981-2 (Version None)
Quarter: 2005Q2

REPORT INFORMATION
  Report Type: 
  Country: None (occurrence: None)
  Receive Date: 20050523
  Receipt Date: 20050509
  Transmission Date: 20051028
  Serious: Yes (Hospitalization, Other)
  Sender: FDA-Public Use
  Company Number: 2005072138

PATIENT
  Sex: Male
  Weight: 90.7194 kg

DRUGS (15)
  1. CELEBREX [Suspect]
     Indication: PAIN
     Dosage: 200 MG (200 MG, 1 IN 1 D), ORAL
     Route: 048
  2. ALL OTHER THERAPEUTIC PRODUCTS (ALL OTHER THERAPEUTIC PRODUCTS) [Suspect]
     Indication: ILL-DEFINED DISORDER
  3. ANAESTHETICS (ANAESTHETICS) [Suspect]
     Indication: ILL-DEFINED DISORDER
  4. LIPITOR [Concomitant]
  5. KLOR-CON [Concomitant]
  6. IRON (IRON) [Concomitant]
  7. ASPIRIN [Concomitant]
  8. PROTONIX [Concomitant]
  9. DIGOXIN [Concomitant]
  10. METOPROLOL TARTRATE [Concomitant]
  11. HYDRALAZINE (HYDRAZALINE) [Concomitant]
  12. LASIX [Concomitant]
  13. INSPRA [Concomitant]
  14. LEXAPRO [Concomitant]
  15. VITAMIN C (VITAMIN C) [Concomitant]

REACTIONS (7)
  - BACK PAIN [None]
  - BODY HEIGHT DECREASED [None]
  - CARDIAC FAILURE CONGESTIVE [None]
  - CORONARY ARTERY OCCLUSION [None]
  - DIABETES MELLITUS [None]
  - THINKING ABNORMAL [None]
  - WEIGHT FLUCTUATION [None]
